FAERS Safety Report 9562614 (Version 2)
Quarter: 2014Q1

REPORT INFORMATION
  Report Type: Report from Study
  Country: US (occurrence: US)
  Receive Date: 20130927
  Receipt Date: 20140113
  Transmission Date: 20141002
  Serious: Yes (Hospitalization)
  Sender: FDA-Public Use
  Company Number: US-UCBSA-098221

PATIENT
  Age: 51 Year
  Sex: Female
  Weight: 78.5 kg

DRUGS (14)
  1. VIMPAT [Suspect]
     Indication: CONVULSION
     Dates: start: 20130813, end: 201309
  2. VIMPAT [Suspect]
     Indication: CONVULSION
     Dosage: ADDITIONAL 10 STUDY MEDICATION PILLS
     Dates: start: 20130910, end: 20130910
  3. NUEDEXTA [Concomitant]
  4. NUEDEXTA [Concomitant]
  5. LAMOTRIGINE [Concomitant]
  6. ATIVAN [Concomitant]
  7. AMBIEN [Concomitant]
  8. NICOTINE [Concomitant]
  9. VENLAFAXINE [Concomitant]
  10. FLUTICASONE [Concomitant]
  11. ATORVASTATIN [Concomitant]
  12. LUBIPROSTONE [Concomitant]
  13. ALBUTEROL SULFATE [Concomitant]
  14. ASPIRIN [Concomitant]

REACTIONS (3)
  - Haemorrhage [Recovered/Resolved]
  - Hallucination [Recovered/Resolved]
  - Overdose [Recovered/Resolved]
